FAERS Safety Report 24530420 (Version 3)
Quarter: 2025Q1

REPORT INFORMATION
  Report Type: Report from Study
  Country: US (occurrence: US)
  Receive Date: 20241021
  Receipt Date: 20250127
  Transmission Date: 20250408
  Serious: Yes (Other)
  Sender: TAKEDA
  Company Number: US-TAKEDA-2024TUS105794

PATIENT
  Sex: Female

DRUGS (2)
  1. FRUQUINTINIB [Suspect]
     Active Substance: FRUQUINTINIB
     Indication: Rectal cancer
  2. FRUQUINTINIB [Suspect]
     Active Substance: FRUQUINTINIB

REACTIONS (7)
  - Thrombosis [Unknown]
  - Myalgia [Unknown]
  - Arthralgia [Unknown]
  - Muscle tightness [Unknown]
  - Epistaxis [Unknown]
  - Dysphonia [Unknown]
  - Blood pressure abnormal [Unknown]
